FAERS Safety Report 4452450-5 (Version None)
Quarter: 2004Q3

REPORT INFORMATION
  Report Type: 
  Country: None (occurrence: None)
  Receive Date: 20040916
  Receipt Date: 20040907
  Transmission Date: 20050211
  Serious: Yes (Hospitalization)
  Sender: FDA-Public Use
  Company Number: 2004CG01758

PATIENT
  Age: 76 Year
  Sex: Male

DRUGS (12)
  1. MOPRAL [Suspect]
     Dosage: 10 MG BID PO
     Route: 048
  2. COMTAN [Suspect]
     Dosage: 3 DF QD PO
     Route: 048
  3. MODOPAR [Suspect]
     Dosage: 100 + 25 MG
     Dates: end: 20040801
  4. HEXAQUINE [Suspect]
     Dosage: 3 DF QD PO
     Route: 048
     Dates: end: 20040810
  5. DOPERGIN [Suspect]
     Dosage: 2 MG QD PO
     Route: 048
     Dates: end: 20040801
  6. ASPIRIN [Suspect]
     Dosage: 160 MG QD PO
     Route: 048
     Dates: end: 20040801
  7. CREON [Suspect]
  8. ATROVENT [Suspect]
  9. SERETIDE    ALLEN + HANBURYS LTD [Suspect]
  10. VENTOLIN [Suspect]
  11. SOLUPRED [Suspect]
  12. LEXOMIL [Suspect]

REACTIONS (3)
  - BLOOD THYROID STIMULATING HORMONE INCREASED [None]
  - ERYTHEMA [None]
  - HAEMATOMA [None]
